FAERS Safety Report 10754529 (Version 2)
Quarter: 2015Q1

REPORT INFORMATION
  Report Type: Spontaneous
  Country: JP (occurrence: JP)
  Receive Date: 20150202
  Receipt Date: 20150217
  Transmission Date: 20150721
  Serious: Yes (Hospitalization)
  Sender: FDA-Public Use
  Company Number: JP-SA-2015SA006787

PATIENT
  Age: 64 Year
  Sex: Female
  Weight: 44 kg

DRUGS (13)
  1. FENTOS TAPE [Concomitant]
     Active Substance: FENTANYL
     Dosage: TAPE (INCLUDING POULTICE)
     Dates: start: 20141127, end: 20141218
  2. MAGLAX [Concomitant]
     Active Substance: MAGNESIUM OXIDE
     Dates: start: 20141122, end: 20141230
  3. IRINOTECAN HYDROCHLORIDE. [Suspect]
     Active Substance: IRINOTECAN HYDROCHLORIDE
     Indication: PANCREATIC CARCINOMA
     Dosage: 140 MG/BODY (98 MG/M2)
     Route: 041
     Dates: start: 20141119, end: 20141119
  4. DEXAMETHASONE. [Concomitant]
     Active Substance: DEXAMETHASONE
     Dates: start: 20141119, end: 20141122
  5. LECICARBON [Concomitant]
     Active Substance: SODIUM BICARBONATE\SODIUM PHOSPHATE, MONOBASIC
     Dates: start: 20141125, end: 20141125
  6. TAKEPRON [Concomitant]
     Active Substance: LANSOPRAZOLE
     Dates: start: 20141219
  7. 5-FU [Suspect]
     Active Substance: FLUOROURACIL
     Indication: PANCREATIC CARCINOMA
     Dosage: ONCE IN 2 DAYS.?DOSE- 1750 MG/BODY/D1-2
     Route: 041
     Dates: start: 20141119, end: 20141119
  8. PALONOSETRON HYDROCHLORIDE [Concomitant]
     Active Substance: PALONOSETRON HYDROCHLORIDE
     Dates: start: 20141119, end: 20141119
  9. EMEND [Concomitant]
     Active Substance: APREPITANT
     Dates: start: 20141119, end: 20141121
  10. CALCIUM LEVOFOLINATE [Suspect]
     Active Substance: LEVOLEUCOVORIN CALCIUM
     Indication: PANCREATIC CARCINOMA
     Dosage: 275 MG/BODY (192.6 MG/M2)
     Route: 041
     Dates: start: 20141119, end: 20141119
  11. ELPLAT [Suspect]
     Active Substance: OXALIPLATIN
     Indication: PANCREATIC CARCINOMA
     Dosage: IV INFUSION SOLUTION, DOSE: 70 MG/BODY (49 MG/M2)
     Route: 041
     Dates: start: 20141119, end: 20141119
  12. VERAPAMIL HCL [Concomitant]
     Active Substance: VERAPAMIL HYDROCHLORIDE
     Dates: start: 20141219
  13. SENNOSIDE A [Concomitant]
     Active Substance: SENNOSIDE A
     Dates: start: 20141121

REACTIONS (2)
  - Deep vein thrombosis [Recovering/Resolving]
  - Cerebral infarction [Not Recovered/Not Resolved]

NARRATIVE: CASE EVENT DATE: 20141205
